FAERS Safety Report 7368043-6 (Version None)
Quarter: 2011Q1

REPORT INFORMATION
  Report Type: 
  Country: None (occurrence: None)
  Receive Date: 20110323
  Receipt Date: 20110308
  Transmission Date: 20110831
  Serious: Yes (Hospitalization)
  Sender: FDA-Public Use
  Company Number: GB-RANBAXY-2011US-43025

PATIENT
  Sex: Male

DRUGS (9)
  1. LORAZEPAM [Suspect]
     Indication: PRODUCT USED FOR UNKNOWN INDICATION
     Dosage: 1 MG, QAM
     Route: 065
  2. LORAZEPAM [Suspect]
     Dosage: 1 MG, BID
     Route: 065
  3. ZOPLICONE [Concomitant]
     Indication: PRODUCT USED FOR UNKNOWN INDICATION
     Dosage: 7.5 MG, AT NIGHT
     Route: 065
  4. ALPRAZOLAM [Suspect]
     Indication: PRODUCT USED FOR UNKNOWN INDICATION
     Dosage: UNK
     Route: 065
  5. LORAZEPAM [Suspect]
     Dosage: 0.5 MG, QPM
  6. FLUOXETINE [Concomitant]
     Indication: PRODUCT USED FOR UNKNOWN INDICATION
     Dosage: 20 MG, ONCE DAILY
     Route: 065
  7. LORAZEPAM [Suspect]
     Dosage: 6 MG/DAY
     Route: 065
  8. TEMAZEPAM [Suspect]
     Indication: PRODUCT USED FOR UNKNOWN INDICATION
     Route: 065
  9. DIAZEPAM [Suspect]
     Indication: PRODUCT USED FOR UNKNOWN INDICATION
     Dosage: 2 MG, QAM AND 5 MG AT NIGHT
     Route: 065

REACTIONS (3)
  - DRUG DEPENDENCE [None]
  - SELF INJURIOUS BEHAVIOUR [None]
  - SUICIDE ATTEMPT [None]
